FAERS Safety Report 23460410 (Version 1)
Quarter: 2024Q1

REPORT INFORMATION
  Report Type: Spontaneous
  Country: US (occurrence: US)
  Receive Date: 20240131
  Receipt Date: 20240131
  Transmission Date: 20240410
  Serious: No
  Sender: FDA-Public Use
  Company Number: US-AUROBINDO-AUR-APL-2023-078214

PATIENT
  Age: 80 Year
  Sex: Female
  Weight: 72.574 kg

DRUGS (1)
  1. LORAZEPAM [Suspect]
     Active Substance: LORAZEPAM
     Indication: Anxiety
     Dosage: UNK, 3 TIMES A DAY (1/2 MG AT 08:30 AM ,1/2 MG AT 02:30 AND 1MG AT NIGHT)
     Route: 065

REACTIONS (3)
  - Illness [Not Recovered/Not Resolved]
  - Emotional distress [Not Recovered/Not Resolved]
  - Drug ineffective [Not Recovered/Not Resolved]
